FAERS Safety Report 23195531 (Version 1)
Quarter: 2023Q4

REPORT INFORMATION
  Report Type: Report from Study
  Country: DE (occurrence: DE)
  Receive Date: 20231117
  Receipt Date: 20231117
  Transmission Date: 20240110
  Serious: Yes (Other)
  Sender: FDA-Public Use
  Company Number: DE-TEVA-2023-DE-2944293

PATIENT
  Age: 57 Year
  Sex: Female

DRUGS (1)
  1. COPAXONE [Suspect]
     Active Substance: GLATIRAMER ACETATE
     Indication: Multiple sclerosis
     Dosage: 20 MILLIGRAM DAILY;
     Route: 065
     Dates: start: 20220930

REACTIONS (4)
  - Eye swelling [Unknown]
  - Swelling [Unknown]
  - Pustule [Unknown]
  - Pruritus [Unknown]

NARRATIVE: CASE EVENT DATE: 20231001
